FAERS Safety Report 4900588-8 (Version None)
Quarter: 2006Q1

REPORT INFORMATION
  Report Type: 
  Country: None (occurrence: None)
  Receive Date: 20060201
  Receipt Date: 20060120
  Transmission Date: 20060701
  Serious: Yes (Hospitalization, Other)
  Sender: FDA-Public Use
  Company Number: KII-2006-0020967

PATIENT
  Age: 52 Year
  Sex: Female

DRUGS (5)
  1. OXYCONTIN [Suspect]
     Dosage: ORAL
     Route: 048
  2. OXYCODONE HCL [Suspect]
     Dosage: ORAL
     Route: 048
  3. METHADONE HCL [Suspect]
     Dosage: ORAL
     Route: 048
  4. CARISOPRODOL [Suspect]
  5. BENZODIAZEPAM DERIVATES [Suspect]

REACTIONS (9)
  - AGITATION [None]
  - DRUG SCREEN POSITIVE [None]
  - LETHARGY [None]
  - MIOSIS [None]
  - OXYGEN SATURATION DECREASED [None]
  - PAIN IN EXTREMITY [None]
  - RESPIRATORY RATE DECREASED [None]
  - SOMNOLENCE [None]
  - UNRESPONSIVE TO VERBAL STIMULI [None]
